FAERS Safety Report 13521698 (Version 2)
Quarter: 2017Q2

REPORT INFORMATION
  Report Type: Spontaneous
  Country: GR (occurrence: GR)
  Receive Date: 20170508
  Receipt Date: 20170529
  Transmission Date: 20170830
  Serious: Yes (Death, Life-Threatening, Other)
  Sender: FDA-Public Use
  Company Number: GR-AUROBINDO-AUR-APL-2017-33487

PATIENT
  Age: 52 Year
  Sex: Male

DRUGS (3)
  1. CYPERMETHRIN [Interacting]
     Active Substance: CYPERMETHRIN
     Indication: PRODUCT USED FOR UNKNOWN INDICATION
     Dosage: UNK, TOTAL VOLUME 50 ML
     Route: 048
  2. MIRTAZAPINE. [Suspect]
     Active Substance: MIRTAZAPINE
     Indication: PRODUCT USED FOR UNKNOWN INDICATION
     Dosage: UNK
     Route: 048
  3. DELTAMETHRIN [Interacting]
     Active Substance: DELTAMETHRIN
     Indication: PRODUCT USED FOR UNKNOWN INDICATION
     Dosage: UNK, TOTAL VOLUME 50 ML
     Route: 048

REACTIONS (2)
  - Toxicity to various agents [Fatal]
  - Drug interaction [Fatal]
